FAERS Safety Report 14694612 (Version 4)
Quarter: 2018Q2

REPORT INFORMATION
  Report Type: Spontaneous
  Country: CA (occurrence: CA)
  Receive Date: 20180329
  Receipt Date: 20180625
  Transmission Date: 20180711
  Serious: Yes (Other)
  Sender: FDA-Public Use
  Company Number: CA-CELLTRION INC.-2018CA018835

PATIENT

DRUGS (4)
  1. METHOTREXATE. [Concomitant]
     Active Substance: METHOTREXATE
     Dosage: 15 MG, 1/WEEK
     Route: 058
  2. INFLECTRA [Suspect]
     Active Substance: INFLIXIMAB-DYYB
     Indication: RHEUMATOID ARTHRITIS
     Dosage: 210 MG,  CYCLIC SCHEDULED FOR 0,2,6, THEN EVERY 8 WEEKS)
     Route: 042
     Dates: start: 20180313
  3. INFLECTRA [Suspect]
     Active Substance: INFLIXIMAB-DYYB
     Dosage: 210 MG,  CYCLIC SCHEDULED FOR 0,2,6, THEN EVERY 8 WEEKS)
     Route: 042
     Dates: start: 20180328
  4. INFLECTRA [Suspect]
     Active Substance: INFLIXIMAB-DYYB
     Dosage: 210 MG,  CYCLIC SCHEDULED FOR 0,2,6, THEN EVERY 8 WEEKS)
     Route: 042
     Dates: start: 20180425

REACTIONS (7)
  - Interstitial lung disease [Unknown]
  - Heart rate decreased [Unknown]
  - Chest pain [Recovering/Resolving]
  - Lung infection [Unknown]
  - Oxygen saturation decreased [Unknown]
  - Heart rate abnormal [Unknown]
  - Fatigue [Unknown]

NARRATIVE: CASE EVENT DATE: 20180313
